FAERS Safety Report 5278527-2 (Version None)
Quarter: 2007Q1

REPORT INFORMATION
  Report Type: 
  Country: None (occurrence: None)
  Receive Date: 20070328
  Receipt Date: 20070322
  Transmission Date: 20070707
  Serious: Yes (Hospitalization)
  Sender: FDA-Public Use
  Company Number: FR-BRISTOL-MYERS SQUIBB COMPANY-13725676

PATIENT
  Age: 50 Year
  Sex: Male
  Weight: 80 kg

DRUGS (10)
  1. REYATAZ [Suspect]
     Indication: HIV INFECTION
     Route: 048
     Dates: start: 20070207
  2. NORVIR [Suspect]
     Indication: HIV INFECTION
     Route: 048
     Dates: start: 20070207
  3. TRUVADA [Suspect]
     Indication: HIV INFECTION
     Route: 048
     Dates: start: 20070207
  4. LAMISIL [Suspect]
     Indication: FUNGAL INFECTION
     Route: 048
  5. KARDEGIC [Concomitant]
     Route: 048
  6. IMOVANE [Concomitant]
     Route: 048
     Dates: start: 20070205, end: 20070207
  7. BACTRIM [Concomitant]
     Route: 048
     Dates: start: 20070206
  8. TENORMIN [Concomitant]
     Indication: MYOCARDIAL INFARCTION
     Route: 048
  9. PERSANTINE [Concomitant]
     Indication: SCAN MYOCARDIAL PERFUSION
     Route: 042
     Dates: start: 20070206
  10. THALLIUM TL-201 [Concomitant]
     Indication: SCAN MYOCARDIAL PERFUSION
     Dates: start: 20070206

REACTIONS (3)
  - DEPRESSED LEVEL OF CONSCIOUSNESS [None]
  - RIB FRACTURE [None]
  - ROAD TRAFFIC ACCIDENT [None]
